FAERS Safety Report 9773708 (Version 1)
Quarter: 2013Q4

REPORT INFORMATION
  Report Type: Report from Study
  Country: BR (occurrence: BR)
  Receive Date: 20131219
  Receipt Date: 20131219
  Transmission Date: 20140711
  Serious: Yes (Hospitalization)
  Sender: FDA-Public Use
  Company Number: BR-US-EMD SERONO, INC.-7257815

PATIENT
  Age: 61 Year
  Sex: Female

DRUGS (5)
  1. REBIF [Suspect]
     Indication: MULTIPLE SCLEROSIS
     Dates: start: 20020902
  2. MANTIDAN [Concomitant]
     Indication: PRODUCT USED FOR UNKNOWN INDICATION
  3. SIFROL [Concomitant]
     Indication: PRODUCT USED FOR UNKNOWN INDICATION
  4. RETEMIC [Concomitant]
     Indication: PRODUCT USED FOR UNKNOWN INDICATION
  5. CAPTOPRIL [Concomitant]
     Indication: PRODUCT USED FOR UNKNOWN INDICATION

REACTIONS (3)
  - Multiple sclerosis relapse [Recovered/Resolved]
  - Syncope [Recovered/Resolved]
  - Urinary tract infection [Recovered/Resolved]
